FAERS Safety Report 13489242 (Version 2)
Quarter: 2017Q2

REPORT INFORMATION
  Report Type: Spontaneous
  Country: CN (occurrence: CN)
  Receive Date: 20170426
  Receipt Date: 20170428
  Transmission Date: 20170830
  Serious: Yes (Hospitalization)
  Sender: FDA-Public Use
  Company Number: CN-ELI_LILLY_AND_COMPANY-CN201704008255

PATIENT
  Age: 72 Year
  Sex: Female

DRUGS (5)
  1. HUMULIN 70/30 [Suspect]
     Active Substance: INSULIN HUMAN
     Indication: DIABETES MELLITUS
     Dosage: 20 IU, EACH MORNING
     Route: 058
     Dates: start: 2008
  2. GLIMEPIRIDE. [Concomitant]
     Active Substance: GLIMEPIRIDE
  3. HUMULIN 70/30 [Suspect]
     Active Substance: INSULIN HUMAN
     Dosage: 20 IU, EACH EVENING
     Route: 058
     Dates: start: 2008
  4. ACARBOSE. [Concomitant]
     Active Substance: ACARBOSE
  5. METFORMIN [Concomitant]
     Active Substance: METFORMIN HYDROCHLORIDE
     Dosage: UNK, UNKNOWN
     Route: 065

REACTIONS (12)
  - Blood glucose increased [Unknown]
  - Urinary tract infection [Unknown]
  - Palpitations [Unknown]
  - Tremor [Unknown]
  - Drug dose omission [Not Recovered/Not Resolved]
  - Coma [Unknown]
  - Dizziness [Unknown]
  - Blood glucose increased [Unknown]
  - Coronary artery disease [Unknown]
  - Anxiety [Unknown]
  - Acidosis [Unknown]
  - Incorrect dose administered [Unknown]

NARRATIVE: CASE EVENT DATE: 2012
